FAERS Safety Report 6568320-2 (Version None)
Quarter: 2010Q1

REPORT INFORMATION
  Report Type: 
  Country: None (occurrence: None)
  Receive Date: 20100203
  Receipt Date: 20100201
  Transmission Date: 20100710
  Serious: Yes (Other)
  Sender: FDA-Public Use
  Company Number: DE-B.I. PHARMACEUTICALS,INC./RIDGEFIELD-2010-DE-00248DE

PATIENT
  Sex: Male
  Weight: 83 kg

DRUGS (3)
  1. MICARDIS HCT [Suspect]
     Indication: HYPERTENSION
     Dosage: 1 ANZ
     Route: 048
  2. MICARDIS HCT [Suspect]
     Dosage: 40 MG TELMISARTAN/12.5 MG HCT
     Route: 048
  3. AMLODIPINE [Concomitant]
     Indication: HYPERTENSION
     Dosage: 2.5 MG

REACTIONS (2)
  - DIZZINESS [None]
  - HYPERTENSIVE CRISIS [None]
